FAERS Safety Report 4314672-3 (Version None)
Quarter: 2004Q1

REPORT INFORMATION
  Report Type: 
  Country: None (occurrence: None)
  Receive Date: 20040309
  Receipt Date: 20040309
  Transmission Date: 20041129
  Serious: Yes (Death)
  Sender: FDA-Public Use
  Company Number: None

PATIENT
  Age: 79 Year
  Sex: Female
  Weight: 80.2867 kg

DRUGS (1)
  1. NAMENDA [Suspect]
     Indication: CEREBROVASCULAR ACCIDENT
     Dosage: 5 MG BID
     Dates: start: 20040126

REACTIONS (2)
  - CEREBROVASCULAR ACCIDENT [None]
  - COMA [None]
